FAERS Safety Report 14949981 (Version 1)
Quarter: 2018Q2

REPORT INFORMATION
  Report Type: Spontaneous
  Country: FR (occurrence: FR)
  Receive Date: 20180530
  Receipt Date: 20180530
  Transmission Date: 20180711
  Serious: Yes (Other)
  Sender: FDA-Public Use
  Company Number: FR-MERCK KGAA-2048637

PATIENT
  Age: 52 Year
  Sex: Female

DRUGS (2)
  1. NOVOTHYROX [Suspect]
     Active Substance: LEVOTHYROXINE SODIUM
     Dates: start: 20170827
  2. NOVOTHYROX [Suspect]
     Active Substance: LEVOTHYROXINE SODIUM
     Indication: POST PROCEDURAL HYPOTHYROIDISM
     Route: 048
     Dates: start: 20170803

REACTIONS (25)
  - Pyrexia [None]
  - Hypotension [Recovering/Resolving]
  - Anxiety [None]
  - Mood swings [None]
  - Nausea [Recovering/Resolving]
  - General physical health deterioration [None]
  - Decreased appetite [None]
  - Myalgia [None]
  - Apathy [None]
  - Loss of personal independence in daily activities [None]
  - Impaired work ability [None]
  - Affective disorder [Recovering/Resolving]
  - Tension [None]
  - Malaise [None]
  - Personality disorder [None]
  - Weight decreased [Recovering/Resolving]
  - Affect lability [None]
  - Asthenia [Recovering/Resolving]
  - Muscle spasms [Recovering/Resolving]
  - Fatigue [None]
  - Irritability [None]
  - Immunoglobulins increased [None]
  - Blood thyroid stimulating hormone increased [Recovering/Resolving]
  - Social avoidant behaviour [None]
  - Depression [None]

NARRATIVE: CASE EVENT DATE: 20170815
